FAERS Safety Report 21312463 (Version 1)
Quarter: 2022Q3

REPORT INFORMATION
  Report Type: Spontaneous
  Country: US (occurrence: None)
  Receive Date: 20220909
  Receipt Date: 20220909
  Transmission Date: 20221026
  Serious: No
  Sender: FDA-Public Use
  Company Number: US-FARMAPROD-202206-1101

PATIENT
  Age: 60 Year
  Sex: Female

DRUGS (8)
  1. OXERVATE [Suspect]
     Active Substance: CENEGERMIN-BKBJ
     Indication: Neurotrophic keratopathy
     Route: 047
     Dates: start: 20220505
  2. ATORVASTATIN CALCIUM [Concomitant]
     Active Substance: ATORVASTATIN CALCIUM
  3. CALCIUM [Concomitant]
     Active Substance: CALCIUM
     Dosage: 500 (1250)
  4. VITAMIN D-400 [Concomitant]
  5. RESTASIS [Concomitant]
     Active Substance: CYCLOSPORINE
  6. TRULICITY [Concomitant]
     Active Substance: DULAGLUTIDE
     Dosage: 0.75 MG/0.5 PEN INJECTOR
  7. TOUJEO MAX [Concomitant]
     Active Substance: INSULIN GLARGINE
  8. METFORMIN ER GASTRIC [Concomitant]

REACTIONS (2)
  - Eye irritation [Unknown]
  - Wrong technique in product usage process [Unknown]

NARRATIVE: CASE EVENT DATE: 20220607
